FAERS Safety Report 24761018 (Version 1)
Quarter: 2024Q4

REPORT INFORMATION
  Report Type: Report from Study
  Country: US (occurrence: US)
  Receive Date: 20241220
  Receipt Date: 20241220
  Transmission Date: 20250115
  Serious: Yes (Other)
  Sender: ALEXION PHARMACEUTICALS
  Company Number: US-AstraZeneca-CH-00770609A

PATIENT

DRUGS (56)
  1. OSIMERTINIB [Suspect]
     Active Substance: OSIMERTINIB
     Indication: Lung neoplasm malignant
     Dosage: 40 MILLIGRAM, QD
  2. OSIMERTINIB [Suspect]
     Active Substance: OSIMERTINIB
     Dosage: 40 MILLIGRAM, QD
     Route: 048
  3. OSIMERTINIB [Suspect]
     Active Substance: OSIMERTINIB
     Dosage: 40 MILLIGRAM, QD
  4. OSIMERTINIB [Suspect]
     Active Substance: OSIMERTINIB
     Dosage: 40 MILLIGRAM, QD
     Route: 048
  5. AIRSUPRA [Concomitant]
     Active Substance: ALBUTEROL SULFATE\BUDESONIDE
     Route: 065
  6. AIRSUPRA [Concomitant]
     Active Substance: ALBUTEROL SULFATE\BUDESONIDE
     Route: 065
  7. ALBUTEROL [Concomitant]
     Active Substance: ALBUTEROL
     Route: 065
  8. ALBUTEROL [Concomitant]
     Active Substance: ALBUTEROL
     Route: 065
  9. AMIODARONE [Concomitant]
     Active Substance: AMIODARONE
     Route: 065
  10. AMIODARONE [Concomitant]
     Active Substance: AMIODARONE
     Route: 065
  11. ANASTROZOLE [Concomitant]
     Active Substance: ANASTROZOLE
     Route: 065
  12. ANASTROZOLE [Concomitant]
     Active Substance: ANASTROZOLE
     Route: 065
  13. ATROVENT HFA [Concomitant]
     Active Substance: IPRATROPIUM BROMIDE
     Route: 065
  14. ATROVENT HFA [Concomitant]
     Active Substance: IPRATROPIUM BROMIDE
     Route: 065
  15. CARVEDILOL [Concomitant]
     Active Substance: CARVEDILOL
     Route: 065
  16. CARVEDILOL [Concomitant]
     Active Substance: CARVEDILOL
     Route: 065
  17. CLINDAMYCIN [Concomitant]
     Active Substance: CLINDAMYCIN
     Route: 065
  18. CLINDAMYCIN [Concomitant]
     Active Substance: CLINDAMYCIN
     Route: 065
  19. ELIQUIS [Concomitant]
     Active Substance: APIXABAN
     Route: 065
  20. ELIQUIS [Concomitant]
     Active Substance: APIXABAN
     Route: 065
  21. FOLIC ACID [Concomitant]
     Active Substance: FOLIC ACID
     Route: 065
  22. FOLIC ACID [Concomitant]
     Active Substance: FOLIC ACID
     Route: 065
  23. LACTASE [Concomitant]
     Active Substance: LACTASE
     Route: 065
  24. LACTASE [Concomitant]
     Active Substance: LACTASE
     Route: 065
  25. LOSARTAN POTASSIUM [Concomitant]
     Active Substance: LOSARTAN POTASSIUM
     Route: 065
  26. LOSARTAN POTASSIUM [Concomitant]
     Active Substance: LOSARTAN POTASSIUM
     Route: 065
  27. METRONIDAZOLE [Concomitant]
     Active Substance: METRONIDAZOLE
     Route: 065
  28. METRONIDAZOLE [Concomitant]
     Active Substance: METRONIDAZOLE
     Route: 065
  29. VITAMINS [Concomitant]
     Active Substance: VITAMINS
     Route: 065
  30. VITAMINS [Concomitant]
     Active Substance: VITAMINS
     Route: 065
  31. MUPIROCIN [Concomitant]
     Active Substance: MUPIROCIN
     Route: 065
  32. MUPIROCIN [Concomitant]
     Active Substance: MUPIROCIN
     Route: 065
  33. OFLOXACIN [Concomitant]
     Active Substance: OFLOXACIN
     Route: 065
  34. OFLOXACIN [Concomitant]
     Active Substance: OFLOXACIN
     Route: 065
  35. ONDANSETRON [Concomitant]
     Active Substance: ONDANSETRON
     Route: 065
  36. ONDANSETRON [Concomitant]
     Active Substance: ONDANSETRON
     Route: 065
  37. SPIRIVA [Concomitant]
     Active Substance: TIOTROPIUM BROMIDE MONOHYDRATE
     Route: 065
  38. SPIRIVA [Concomitant]
     Active Substance: TIOTROPIUM BROMIDE MONOHYDRATE
     Route: 065
  39. ZYRTEC [Concomitant]
     Active Substance: CETIRIZINE HYDROCHLORIDE
     Route: 065
  40. ZYRTEC [Concomitant]
     Active Substance: CETIRIZINE HYDROCHLORIDE
     Route: 065
  41. COLLAGEN [Concomitant]
     Active Substance: COLLAGEN
  42. ALIGN [Concomitant]
     Active Substance: BIFIDOBACTERIUM LONGUM SUBSP. INFANTIS
  43. DIETARY SUPPLEMENT [Concomitant]
     Active Substance: DIETARY SUPPLEMENT
  44. GENTEAL MILD [Concomitant]
     Active Substance: HYPROMELLOSE 2910 (4000 MPA.S)
  45. REFRESH CLASSIC [Concomitant]
     Active Substance: POLYVINYL ALCOHOL\POVIDONE
  46. CLARITIN [Concomitant]
     Active Substance: LORATADINE
  47. NITROFURANTOIN [Concomitant]
     Active Substance: NITROFURANTOIN
  48. CORTISPORIN [Concomitant]
     Active Substance: BACITRACIN ZINC\HYDROCORTISONE\NEOMYCIN SULFATE\POLYMYXIN B SULFATE
  49. HYDROCORTISONE [Concomitant]
     Active Substance: HYDROCORTISONE
  50. IMODIUM A-D [Concomitant]
     Active Substance: LOPERAMIDE HYDROCHLORIDE
  51. TUMS [Concomitant]
     Active Substance: CALCIUM CARBONATE
  52. CYANOCOBALAMIN [Concomitant]
     Active Substance: CYANOCOBALAMIN
  53. DOXYCYCLINE HYCLATE [Concomitant]
     Active Substance: DOXYCYCLINE HYCLATE
  54. KETOCONAZOLE [Concomitant]
     Active Substance: KETOCONAZOLE
  55. FLUTICASONE [Concomitant]
     Active Substance: FLUTICASONE
  56. NYSTATIN;TRIAMCINOLONE [Concomitant]

REACTIONS (3)
  - Glaucoma [Unknown]
  - Brain fog [Unknown]
  - Hypertension [Unknown]
